FAERS Safety Report 6393831-2 (Version None)
Quarter: 2009Q4

REPORT INFORMATION
  Report Type: 
  Country: None (occurrence: None)
  Receive Date: 20091008
  Receipt Date: 20091005
  Transmission Date: 20100525
  Serious: Yes (Hospitalization)
  Sender: FDA-Public Use
  Company Number: US-BRISTOL-MYERS SQUIBB COMPANY-14805766

PATIENT
  Age: 84 Year
  Sex: Female

DRUGS (13)
  1. ABILIFY [Suspect]
     Dates: start: 20090304, end: 20090317
  2. AMOXICILLIN [Concomitant]
  3. ATIVAN [Concomitant]
  4. CYMBALTA [Concomitant]
  5. ESGIC [Concomitant]
  6. EVISTA [Concomitant]
  7. FLONASE [Concomitant]
  8. PEPCID [Concomitant]
  9. PROVENTIL-HFA [Concomitant]
  10. PROZAC [Concomitant]
  11. RITALIN [Concomitant]
  12. VALIUM [Concomitant]
  13. VICODIN [Concomitant]

REACTIONS (1)
  - POST PROCEDURAL HAEMORRHAGE [None]
